FAERS Safety Report 5284258-5 (Version None)
Quarter: 2007Q2

REPORT INFORMATION
  Report Type: 
  Country: None (occurrence: None)
  Receive Date: 20070403
  Receipt Date: 20070328
  Transmission Date: 20071010
  Serious: Yes (Death)
  Sender: FDA-Public Use
  Company Number: PHBS2007US05491

PATIENT
  Age: 82 Year
  Sex: Female

DRUGS (3)
  1. CYCLOSPORINE [Suspect]
     Indication: ANGIOIMMUNOBLASTIC T-CELL LYMPHOMA
     Route: 048
  2. PREDNISONE [Suspect]
     Indication: ANGIOIMMUNOBLASTIC T-CELL LYMPHOMA
     Route: 065
  3. WARFARIN SODIUM [Suspect]
     Route: 065

REACTIONS (1)
  - HAEMORRHAGE INTRACRANIAL [None]
